FAERS Safety Report 23791260 (Version 1)
Quarter: 2024Q2

REPORT INFORMATION
  Report Type: Report from Study
  Country: CH (occurrence: CH)
  Receive Date: 20240428
  Receipt Date: 20240428
  Transmission Date: 20240715
  Serious: Yes (Hospitalization)
  Sender: FDA-Public Use
  Company Number: CH-ABBVIE-5735353

PATIENT
  Age: 60 Year
  Sex: Male

DRUGS (4)
  1. CARBIDOPA\LEVODOPA [Suspect]
     Active Substance: CARBIDOPA\LEVODOPA
     Indication: Parkinson^s disease
     Dosage: 3.5 ML, CRD: 3.4 ML/H, ED: 2.5 ML?FREQUENCY TEXT: 16H THERAPY
     Route: 050
     Dates: start: 20240424
  2. CARBIDOPA\LEVODOPA [Suspect]
     Active Substance: CARBIDOPA\LEVODOPA
     Dosage: FREQUENCY TEXT: 16H THERAPY
     Route: 050
     Dates: start: 20170228
  3. CARBIDOPA\LEVODOPA [Suspect]
     Active Substance: CARBIDOPA\LEVODOPA
     Dosage: 3.5 ML, CRD: 3.4 ML/H, ED: 2.5 ML
     Route: 050
     Dates: start: 20240424, end: 20240424
  4. CARBIDOPA\LEVODOPA [Suspect]
     Active Substance: CARBIDOPA\LEVODOPA
     Dosage: 3.5 ML, CRD: 3.4 ML/H, ED: 2.5 ML
     Route: 050
     Dates: start: 20230226, end: 20240424

REACTIONS (3)
  - Rehabilitation therapy [Not Recovered/Not Resolved]
  - Off label use [Recovered/Resolved]
  - Device occlusion [Recovered/Resolved]

NARRATIVE: CASE EVENT DATE: 20240424
